FAERS Safety Report 6349413-1 (Version None)
Quarter: 2009Q3

REPORT INFORMATION
  Report Type: 
  Country: None (occurrence: None)
  Receive Date: 20090911
  Receipt Date: 20090902
  Transmission Date: 20100115
  Serious: Yes (Life-Threatening, Hospitalization)
  Sender: FDA-Public Use
  Company Number: US-JNJFOC-20090901460

PATIENT
  Age: 40 Year
  Sex: Female

DRUGS (5)
  1. EXTRA STRENGTH TYLENOL [Suspect]
  2. EXTRA STRENGTH TYLENOL [Suspect]
     Indication: DRUG USE FOR UNKNOWN INDICATION
     Dosage: ^FULL BOTTLE^ OVER A 24-HOUR PERIOD
  3. OXYCONTIN [Concomitant]
     Indication: INTERVERTEBRAL DISC OPERATION
  4. OXYCODONE [Concomitant]
     Indication: INTERVERTEBRAL DISC OPERATION
  5. GABAPENTIN [Concomitant]
     Indication: INTERVERTEBRAL DISC OPERATION

REACTIONS (4)
  - ACUTE HEPATIC FAILURE [None]
  - HEPATIC ENCEPHALOPATHY [None]
  - INTENTIONAL OVERDOSE [None]
  - RENAL FAILURE ACUTE [None]
